FAERS Safety Report 19189957 (Version 6)
Quarter: 2021Q4

REPORT INFORMATION
  Report Type: Spontaneous
  Country: DE (occurrence: DE)
  Receive Date: 20210428
  Receipt Date: 20211218
  Transmission Date: 20220303
  Serious: Yes (Other)
  Sender: FDA-Public Use
  Company Number: DE-AMGEN-DEUNI2021056624

PATIENT
  Age: 77 Year
  Sex: Female
  Weight: 66 kg

DRUGS (40)
  1. LEUCOVORIN [Suspect]
     Active Substance: LEUCOVORIN
     Indication: Colorectal cancer metastatic
     Dosage: 680 MILLIGRAM
     Route: 065
     Dates: start: 20200902
  2. LEUCOVORIN [Suspect]
     Active Substance: LEUCOVORIN
     Dosage: 640 MILLIGRAM
     Route: 065
     Dates: start: 20210324
  3. IRINOTECAN [Suspect]
     Active Substance: IRINOTECAN
     Indication: Colorectal cancer metastatic
     Dosage: 300 MILLIGRAM, CYCLICAL
     Route: 042
     Dates: start: 20201209, end: 20210301
  4. IRINOTECAN [Suspect]
     Active Substance: IRINOTECAN
     Dosage: 288 MILLIGRAM
     Route: 042
     Dates: start: 20210324
  5. OXALIPLATIN [Suspect]
     Active Substance: OXALIPLATIN
     Indication: Colorectal cancer metastatic
     Dosage: 144 MILLIGRAM
     Route: 065
     Dates: start: 20200916
  6. OXALIPLATIN [Suspect]
     Active Substance: OXALIPLATIN
     Dosage: 115 MILLIGRAM
     Route: 065
     Dates: start: 20200902
  7. FLUOROURACIL [Suspect]
     Active Substance: FLUOROURACIL
     Indication: Colorectal cancer metastatic
     Dosage: 4080 MILLIGRAM
     Route: 042
     Dates: start: 20200902
  8. FLUOROURACIL [Suspect]
     Active Substance: FLUOROURACIL
     Dosage: 3840 MILLIGRAM
     Route: 042
     Dates: start: 20210324
  9. VECTIBIX [Suspect]
     Active Substance: PANITUMUMAB
     Indication: Colorectal cancer metastatic
     Dosage: 400 MILLIGRAM
     Route: 042
     Dates: start: 20200902
  10. VECTIBIX [Suspect]
     Active Substance: PANITUMUMAB
     Dosage: 360 MILLIGRAM
     Route: 042
     Dates: start: 20210324
  11. AKYNZEO [Concomitant]
     Active Substance: NETUPITANT\PALONOSETRON HYDROCHLORIDE
     Indication: Colorectal cancer metastatic
     Dosage: 300 MILLIGRAM, CYCLICAL
     Route: 048
     Dates: start: 20200902
  12. ALPHA LIPON [Concomitant]
     Indication: Tremor
     Dosage: 600 MILLIGRAM
     Route: 048
     Dates: start: 20210210
  13. AMLODIPINE [Concomitant]
     Active Substance: AMLODIPINE BESYLATE
     Indication: Hypertension
     Dosage: 2.5 MILLIGRAM, ONCE A DAY
     Route: 048
     Dates: start: 2020, end: 20210118
  14. AMPICILLIN SODIUM\SULBACTAM SODIUM [Concomitant]
     Active Substance: AMPICILLIN SODIUM\SULBACTAM SODIUM
     Indication: Infection
     Dosage: 3 GRAM, ONCE A DAY
     Route: 048
     Dates: start: 20210113, end: 20210115
  15. ATROPINE [Concomitant]
     Active Substance: ATROPINE
     Indication: Colorectal cancer metastatic
     Dosage: 0.25 MILLIGRAM, CYCLICAL
     Route: 058
     Dates: start: 20201209
  16. BRICANYL [Concomitant]
     Active Substance: TERBUTALINE SULFATE
     Indication: Bronchospasm
     Dosage: 0.5 MILLIGRAM, ONCE A DAY
     Route: 058
     Dates: start: 20201028, end: 20201028
  17. CALCIGEN D3 [Concomitant]
     Indication: Hypocalcaemia
     Dosage: 2500 MILLIGRAM, ONCE A DAY(1250 MILLIGRAM, BID )
     Route: 048
     Dates: start: 20201123
  18. CALCIUM [Concomitant]
     Active Substance: CALCIUM
     Indication: Hypocalcaemia
     Dosage: 1000 MILLIGRAM, ONCE A DAY
     Route: 048
     Dates: start: 20201118
  19. CEFPODOXIME [Concomitant]
     Active Substance: CEFPODOXIME
     Indication: C-reactive protein increased
     Dosage: 200 MILLIGRAM, ONCE A DAY
     Route: 048
     Dates: start: 20201112, end: 20201117
  20. DEXAMETHASONE [Concomitant]
     Active Substance: DEXAMETHASONE
     Indication: Colorectal cancer metastatic
     Dosage: 8 MILLIGRAM, CYCLICAL
     Route: 042
     Dates: start: 20200902
  21. HUMAN RED BLOOD CELL [Concomitant]
     Active Substance: HUMAN RED BLOOD CELL
     Indication: Anaemia
     Dosage: 300 MILLILITER, ONCE A DAY
     Route: 042
     Dates: start: 20210118, end: 20210118
  22. FOLIC ACID [Concomitant]
     Active Substance: FOLIC ACID
     Indication: Product used for unknown indication
     Dosage: UNK
     Route: 065
     Dates: start: 20200708
  23. FOLIC ACID [Concomitant]
     Active Substance: FOLIC ACID
     Indication: Folate deficiency
     Dosage: 5 MILLIGRAM, ONCE A DAY
     Route: 048
     Dates: start: 20200708
  24. SODIUM PICOSULFATE [Concomitant]
     Active Substance: SODIUM PICOSULFATE
     Indication: Constipation
     Dosage: 15 DROP PRN (AS NEEDED)
     Route: 048
     Dates: start: 20210120
  25. LOPERAMIDE [Concomitant]
     Active Substance: LOPERAMIDE
     Indication: Diarrhoea
     Dosage: 1.86 MILLIGRAM PRN (AS NEEDED)
     Route: 048
     Dates: start: 20200903
  26. MAGNESIUM OXIDE [Concomitant]
     Active Substance: MAGNESIUM OXIDE
     Indication: Hypomagnesaemia
     Dosage: 300 MILLIGRAM, ONCE A DAY(150 MILLIGRAM, BID )
     Route: 048
     Dates: start: 20201118
  27. MCP [Concomitant]
     Active Substance: METOCLOPRAMIDE HYDROCHLORIDE
     Indication: Nausea
     Dosage: 10 MILLIGRAM PRN (AS NEEDED)
     Route: 048
     Dates: start: 20200902
  28. METOPROLOL [Concomitant]
     Active Substance: METOPROLOL
     Indication: Hypertension
     Dosage: 50 MILLIGRAM, ONCE A DAY
     Route: 048
     Dates: start: 2020
  29. MINERALS\VITAMINS [Concomitant]
     Active Substance: MINERALS\VITAMINS
     Indication: Weight decreased
     Dosage: 125 MILLILITER  PRN (AS NEEDED)
     Route: 048
     Dates: start: 20210120
  30. MINOCYCLINE [Concomitant]
     Active Substance: MINOCYCLINE HYDROCHLORIDE
     Indication: Prophylaxis
     Dosage: 100 MILLIGRAM, ONCE A DAY(50 MILLIGRAM, BID )
     Route: 048
     Dates: start: 20200902
  31. Novamin [Concomitant]
     Indication: Pain
     Dosage: 2000 MILLIGRAM, ONCE A DAY
     Route: 048
     Dates: start: 2020
  32. ONDANSETRON [Concomitant]
     Active Substance: ONDANSETRON
     Indication: Nausea
     Dosage: 8 MILLIGRAM, ONCE A DAY
     Route: 042
     Dates: start: 20201111, end: 20201111
  33. PANTOZOL [Concomitant]
     Active Substance: PANTOPRAZOLE SODIUM
     Indication: Chronic gastritis
     Dosage: 40 MILLIGRAM, ONCE A DAY
     Route: 048
     Dates: start: 20200910
  34. PREDNISOLONE [Concomitant]
     Active Substance: PREDNISOLONE
     Indication: Bronchospasm
     Dosage: 200 MILLIGRAM, ONCE A DAY
     Route: 042
     Dates: start: 20201028, end: 20201028
  35. POTASSIUM [Concomitant]
     Active Substance: POTASSIUM
     Indication: Hypokalaemia
     Dosage: 9999 UNK
     Route: 065
     Dates: start: 20210113, end: 20210118
  36. POTASSIUM [Concomitant]
     Active Substance: POTASSIUM
     Indication: Hypokalaemia
     Dosage: 20 MILLILITER PRN (AS NEEDED)
     Route: 042
     Dates: start: 20201112, end: 20201118
  37. Riopan [Concomitant]
     Indication: Abdominal pain upper
     Dosage: 10 MILLILITERPRN (AS NEEDED)
     Route: 048
     Dates: start: 20201014
  38. SIMVASTATIN [Concomitant]
     Active Substance: SIMVASTATIN
     Indication: Metabolic disorder
     Dosage: 20 MILLIGRAM, ONCE A DAY
     Route: 048
  39. TRIMIPRAMINE MALEATE [Concomitant]
     Active Substance: TRIMIPRAMINE MALEATE
     Indication: Depression
     Dosage: 100 MILLIGRAM, ONCE A DAY(50 MILLIGRAM, BID )
     Route: 048
  40. ALIZAPRIDE HYDROCHLORIDE [Concomitant]
     Active Substance: ALIZAPRIDE HYDROCHLORIDE
     Indication: Nausea
     Dosage: 50 MILLIGRAM PRN (AS NEEDED)
     Route: 048
     Dates: start: 20200910

REACTIONS (1)
  - Hypokalaemia [Recovered/Resolved]

NARRATIVE: CASE EVENT DATE: 20210310
